FAERS Safety Report 23397937 (Version 1)
Quarter: 2024Q1

REPORT INFORMATION
  Report Type: Spontaneous
  Country: US (occurrence: None)
  Receive Date: 20240111
  Receipt Date: 20240111
  Transmission Date: 20240410
  Serious: Yes (Other)
  Sender: FDA-Public Use
  Company Number: None

PATIENT
  Sex: 0

DRUGS (15)
  1. CEFAZOLIN [Suspect]
     Active Substance: CEFAZOLIN
     Indication: Antibiotic prophylaxis
     Dosage: 2 G GRAM(S) ?
     Route: 042
     Dates: start: 20231228, end: 20231228
  2. NORMOSOL R [Concomitant]
     Dates: start: 20231226, end: 20231226
  3. MIDAZOLAM [Concomitant]
     Active Substance: MIDAZOLAM
     Dates: start: 20231226, end: 20231226
  4. LIDOCAINE [Concomitant]
     Active Substance: LIDOCAINE
     Dates: start: 20231226, end: 20231226
  5. FENTANYL [Concomitant]
     Active Substance: FENTANYL\FENTANYL CITRATE
     Dates: start: 20231226, end: 20231227
  6. PROPOFOL [Concomitant]
     Active Substance: PROPOFOL
     Dates: start: 20231226, end: 20231226
  7. ROCURONIUM [Concomitant]
     Active Substance: ROCURONIUM BROMIDE
     Dates: start: 20231226, end: 20231226
  8. HYDROMORPHONE [Concomitant]
     Active Substance: HYDROMORPHONE
     Dates: start: 20231226, end: 20231226
  9. TRANEXAMIC ACID [Concomitant]
     Active Substance: TRANEXAMIC ACID
     Dates: start: 20231226, end: 20231226
  10. NITROGLYCERIN [Concomitant]
     Active Substance: NITROGLYCERIN
     Dates: start: 20231226, end: 20231226
  11. CLEVIDIPINE [Concomitant]
     Active Substance: CLEVIDIPINE
     Dates: start: 20231226, end: 20231227
  12. NOREPINEPHRINE [Concomitant]
     Active Substance: NOREPINEPHRINE
     Dates: start: 20231226, end: 20231226
  13. PROTAMINE [Concomitant]
     Active Substance: PROTAMINE
     Dates: start: 20231226, end: 20231226
  14. CALCIUM CHLORIDE [Concomitant]
     Active Substance: CALCIUM CHLORIDE
     Dates: start: 20231226, end: 20231226
  15. PANTOPRAZOLE [Concomitant]
     Active Substance: PANTOPRAZOLE
     Dates: start: 20231226, end: 20231226

REACTIONS (1)
  - Urticaria [None]

NARRATIVE: CASE EVENT DATE: 20231226
